FAERS Safety Report 11050502 (Version 2)
Quarter: 2015Q3

REPORT INFORMATION
  Report Type: Spontaneous
  Country: IT (occurrence: IT)
  Receive Date: 20150421
  Receipt Date: 20150713
  Transmission Date: 20151125
  Serious: Yes (Other)
  Sender: FDA-Public Use
  Company Number: IT-ACCORD-030061

PATIENT
  Age: 90 Year
  Sex: Female
  Weight: 80 kg

DRUGS (1)
  1. QUETIAPINE [Suspect]
     Active Substance: QUETIAPINE
     Indication: PRODUCT USED FOR UNKNOWN INDICATION
     Route: 048

REACTIONS (1)
  - Paradoxical drug reaction [Recovering/Resolving]

NARRATIVE: CASE EVENT DATE: 20141107
